FAERS Safety Report 5091965-6 (Version None)
Quarter: 2006Q3

REPORT INFORMATION
  Report Type: 
  Country: None (occurrence: None)
  Receive Date: 20060825
  Receipt Date: 20060816
  Transmission Date: 20061208
  Serious: Yes (Other)
  Sender: FDA-Public Use
  Company Number: GXKR2006GB04951

PATIENT
  Age: 29 Year
  Sex: Female
  Weight: 52 kg

DRUGS (1)
  1. LORATADINE [Suspect]
     Indication: SEASONAL ALLERGY
     Dosage: 1 DF, QD; ORAL
     Route: 048
     Dates: start: 20060519, end: 20060525

REACTIONS (3)
  - DYSPNOEA [None]
  - PRURITUS [None]
  - SKIN EXFOLIATION [None]
